FAERS Safety Report 19511248 (Version 7)
Quarter: 2021Q3

REPORT INFORMATION
  Report Type: Report from Study
  Country: FR (occurrence: FR)
  Receive Date: 20210709
  Receipt Date: 20210929
  Transmission Date: 20211014
  Serious: Yes (Hospitalization)
  Sender: FDA-Public Use
  Company Number: NVSC2021FR150334

PATIENT
  Age: 73 Year
  Sex: Male
  Weight: 104 kg

DRUGS (14)
  1. TRAMETINIB [Suspect]
     Active Substance: TRAMETINIB
     Indication: MALIGNANT MELANOMA
     Dosage: 0.5 MG, QD
     Route: 048
     Dates: start: 20210407, end: 20210623
  2. MACROGOL [Concomitant]
     Active Substance: POLYETHYLENE GLYCOLS
     Indication: CONSTIPATION
     Dosage: UNK
     Route: 065
     Dates: start: 20210525
  3. PRIMPERAN [Concomitant]
     Active Substance: METOCLOPRAMIDE HYDROCHLORIDE
     Indication: NAUSEA
     Dosage: UNK
     Route: 065
     Dates: start: 20210415
  4. GLICLAZIDE [Concomitant]
     Active Substance: GLICLAZIDE
     Indication: TYPE 2 DIABETES MELLITUS
     Dosage: UNK
     Route: 065
     Dates: start: 20000101
  5. CAPTOPRIL. [Concomitant]
     Active Substance: CAPTOPRIL
     Indication: HYPERTENSION
     Dosage: UNK
     Route: 065
     Dates: start: 20000101
  6. KARDEGIC [Concomitant]
     Active Substance: ASPIRIN DL-LYSINE
     Indication: PROPHYLAXIS
     Dosage: UNK
     Route: 065
     Dates: start: 20000101
  7. EUCREAS [Concomitant]
     Active Substance: METFORMIN HYDROCHLORIDE\VILDAGLIPTIN
     Indication: TYPE 2 DIABETES MELLITUS
     Dosage: UNK
     Route: 065
     Dates: start: 20000101
  8. MAGNESIUM + B6 [Concomitant]
     Indication: BLOOD MAGNESIUM DECREASED
     Dosage: UNK
     Route: 065
     Dates: start: 20210421
  9. NAPORAFENIB. [Suspect]
     Active Substance: NAPORAFENIB
     Indication: MALIGNANT MELANOMA
     Dosage: 400 MG, BID
     Route: 048
     Dates: start: 20210407, end: 20210623
  10. LIPIKAR [Concomitant]
     Active Substance: COSMETICS
     Indication: XEROSIS
     Dosage: UNK
     Route: 065
     Dates: start: 20210407
  11. LIPIKAR [Concomitant]
     Active Substance: COSMETICS
     Indication: FOLLICULITIS
  12. METFORMINE [Concomitant]
     Active Substance: METFORMIN HYDROCHLORIDE
     Indication: TYPE 2 DIABETES MELLITUS
     Dosage: UNK
     Route: 065
     Dates: start: 20000101, end: 20210701
  13. LYRICA [Concomitant]
     Active Substance: PREGABALIN
     Indication: PAIN IN EXTREMITY
     Dosage: UNK
     Route: 065
     Dates: start: 20000101
  14. TRULICITY [Concomitant]
     Active Substance: DULAGLUTIDE
     Indication: TYPE 2 DIABETES MELLITUS
     Dosage: UNK
     Route: 065
     Dates: start: 20000101, end: 20210701

REACTIONS (10)
  - Pyrexia [Not Recovered/Not Resolved]
  - Oxygen saturation decreased [Recovered/Resolved]
  - General physical health deterioration [Not Recovered/Not Resolved]
  - Decreased appetite [Not Recovered/Not Resolved]
  - Folliculitis [Not Recovered/Not Resolved]
  - Asthenia [Not Recovered/Not Resolved]
  - Haematochezia [Not Recovered/Not Resolved]
  - Skin fissures [Not Recovered/Not Resolved]
  - Urinary tract infection bacterial [Not Recovered/Not Resolved]
  - Inappropriate antidiuretic hormone secretion [Not Recovered/Not Resolved]

NARRATIVE: CASE EVENT DATE: 20210421
